FAERS Safety Report 8087608-X (Version None)
Quarter: 2012Q1

REPORT INFORMATION
  Report Type: 
  Country: None (occurrence: None)
  Receive Date: 20120128
  Receipt Date: 20110525
  Transmission Date: 20120608
  Serious: No
  Sender: FDA-Public Use
  Company Number: US-ABBOTT-11P-163-0728563-00

PATIENT
  Sex: Male

DRUGS (4)
  1. HUMIRA [Suspect]
     Indication: PSORIASIS
     Dates: start: 20090101
  2. DANAZOL [Concomitant]
     Indication: ANGIOEDEMA
     Dates: start: 20100501
  3. VERAPAMIL [Concomitant]
  4. CYCLOSPORINE [Concomitant]
     Indication: PSORIASIS
     Dates: start: 20110101

REACTIONS (2)
  - HYPOAESTHESIA [None]
  - ANGIOEDEMA [None]
